FAERS Safety Report 5086381-7 (Version None)
Quarter: 2006Q3

REPORT INFORMATION
  Report Type: 
  Country: None (occurrence: None)
  Receive Date: 20060703
  Receipt Date: 20060316
  Transmission Date: 20061208
  Serious: No
  Sender: FDA-Public Use
  Company Number: 2006S1002285

PATIENT
  Age: 22 Year
  Sex: Male

DRUGS (7)
  1. CLOZAPINE [Suspect]
     Indication: ATTENTION DEFICIT/HYPERACTIVITY DISORDER
     Dosage: 200 MG;HS;ORAL
     Route: 048
  2. CLOZAPINE [Suspect]
     Indication: BIPOLAR I DISORDER
     Dosage: 200 MG;HS;ORAL
     Route: 048
  3. DEXAMFETAMINE SULFATE/AMFETAMINE SULFATE/DEXAMFETAMINE SACCHARATE/AMFE [Concomitant]
  4. LAMOTRIGINE [Concomitant]
  5. TOPIRAMATE [Concomitant]
  6. BUPROPION HYDROCHLORIDE [Concomitant]
  7. LANSOPRAZOLE [Concomitant]

REACTIONS (1)
  - GRANULOCYTOPENIA [None]
